FAERS Safety Report 19827513 (Version 1)
Quarter: 2021Q3

REPORT INFORMATION
  Report Type: Spontaneous
  Country: NL (occurrence: PT)
  Receive Date: 20210908
  Receipt Date: 20210908
  Transmission Date: 20211014
  Serious: Yes (Disabling)
  Sender: FDA-Public Use
  Company Number: PT-FRESENIUS KABI-FK202107964

PATIENT
  Age: 40 Year
  Sex: Female
  Weight: 64 kg

DRUGS (5)
  1. KETOROLAC [Suspect]
     Active Substance: KETOROLAC TROMETHAMINE
     Indication: TENDON DISORDER
     Dosage: 30 MG POR DIA (1.A INJECTAVEL, 5 AMPOLAS BEBIVEIS NOS DIAS SEGUINTES) // 30 MG PER DAY (1ST INJECTIO
     Route: 040
     Dates: start: 20210429, end: 20210430
  2. PIROXICAM. [Suspect]
     Active Substance: PIROXICAM
     Indication: TENDON DISORDER
     Dosage: 20 MG
     Route: 030
     Dates: start: 20210429, end: 20210429
  3. ETHINYLESTRADIOL/DIENOGEST [Concomitant]
     Indication: PRODUCT USED FOR UNKNOWN INDICATION
     Route: 065
  4. KETOROLAC [Suspect]
     Active Substance: KETOROLAC TROMETHAMINE
     Route: 048
     Dates: start: 20210430, end: 20210504
  5. HYALURONATE SODIUM [Suspect]
     Active Substance: HYALURONATE SODIUM
     Indication: TENDON DISORDER
     Dosage: 30 MG
     Route: 014
     Dates: start: 20210429, end: 20210429

REACTIONS (1)
  - Herpes zoster [Unknown]

NARRATIVE: CASE EVENT DATE: 20210509
